FAERS Safety Report 9199447 (Version 1)
Quarter: 2013Q1

REPORT INFORMATION
  Report Type: Spontaneous
  Country: US (occurrence: US)
  Receive Date: 20130329
  Receipt Date: 20130329
  Transmission Date: 20140127
  Serious: No
  Sender: FDA-Public Use
  Company Number: US-PFIZER INC-2013101777

PATIENT
  Age: 73 Year
  Sex: Female
  Weight: 65.76 kg

DRUGS (3)
  1. LYRICA [Suspect]
     Indication: PAIN
     Dosage: 75 MG, 1X/DAY
     Route: 048
     Dates: start: 20130203, end: 2013
  2. LYRICA [Suspect]
     Dosage: 75 MG, EVERY OTHER DAY
     Route: 048
     Dates: start: 2013
  3. ALEVE [Concomitant]
     Indication: HEADACHE
     Dosage: UNK, AS NEEDED

REACTIONS (4)
  - Disturbance in attention [Not Recovered/Not Resolved]
  - Headache [Not Recovered/Not Resolved]
  - Dizziness [Not Recovered/Not Resolved]
  - Myalgia [Not Recovered/Not Resolved]
